FAERS Safety Report 6306480-9 (Version None)
Quarter: 2009Q3

REPORT INFORMATION
  Report Type: 
  Country: None (occurrence: None)
  Receive Date: 20090810
  Receipt Date: 20090727
  Transmission Date: 20100115
  Serious: Yes (Hospitalization)
  Sender: FDA-Public Use
  Company Number: 2009247225

PATIENT
  Sex: Male

DRUGS (1)
  1. FRAGMIN [Suspect]
     Dates: start: 20090601, end: 20090601

REACTIONS (2)
  - CELLULITIS [None]
  - POST PROCEDURAL HAEMATOMA [None]
